FAERS Safety Report 13017886 (Version 2)
Quarter: 2017Q1

REPORT INFORMATION
  Report Type: Spontaneous
  Country: JP (occurrence: JP)
  Receive Date: 20161212
  Receipt Date: 20170206
  Transmission Date: 20170428
  Serious: Yes (Hospitalization, Other)
  Sender: FDA-Public Use
  Company Number: JP-GLAXOSMITHKLINE-JP2016JPN127431

PATIENT
  Age: 84 Year
  Sex: Female
  Weight: 47 kg

DRUGS (5)
  1. VALTREX [Suspect]
     Active Substance: VALACYCLOVIR HYDROCHLORIDE
     Indication: HERPES ZOSTER
     Dosage: 1000 MG, TID
     Route: 048
     Dates: start: 20160826, end: 20160827
  2. REBAMIPIDE [Suspect]
     Active Substance: REBAMIPIDE
     Dosage: 1 DF, TID
     Route: 048
  3. LOXOPROFEN [Suspect]
     Active Substance: LOXOPROFEN
     Dosage: 1 DF, TID
     Route: 048
  4. VICCLOX [Concomitant]
     Active Substance: ACYCLOVIR SODIUM
  5. ALTAT [Suspect]
     Active Substance: ROXATIDINE ACETATE HYDROCHLORIDE
     Dosage: 1 DF, 1D
     Route: 048

REACTIONS (3)
  - Acute kidney injury [Recovering/Resolving]
  - Renal impairment [Recovering/Resolving]
  - Anuria [Recovering/Resolving]

NARRATIVE: CASE EVENT DATE: 20160827
